FAERS Safety Report 10644487 (Version 1)
Quarter: 2014Q4

REPORT INFORMATION
  Report Type: Spontaneous
  Country: US (occurrence: US)
  Receive Date: 20141210
  Receipt Date: 20141210
  Transmission Date: 20150529
  Serious: Yes (Hospitalization, Other)
  Sender: FDA-Public Use
  Company Number: US-GLAXOSMITHKLINE-US2014033608

PATIENT
  Age: 52 Year
  Sex: Female

DRUGS (6)
  1. CELEXA [Concomitant]
     Active Substance: CITALOPRAM HYDROBROMIDE
  2. DALIRESP [Concomitant]
     Active Substance: ROFLUMILAST
  3. ALBUTEROL SULFATE. [Concomitant]
     Active Substance: ALBUTEROL SULFATE
  4. BREO ELLIPTA [Suspect]
     Active Substance: FLUTICASONE FUROATE\VILANTEROL TRIFENATATE
     Indication: CHRONIC OBSTRUCTIVE PULMONARY DISEASE
     Dosage: 1 PUFF(S), BID
     Route: 055
     Dates: start: 201403
  5. SUBOXONE [Concomitant]
     Active Substance: BUPRENORPHINE HYDROCHLORIDE\NALOXONE HYDROCHLORIDE
  6. GABAPENTIN. [Concomitant]
     Active Substance: GABAPENTIN

REACTIONS (7)
  - Urinary incontinence [Recovered/Resolved]
  - Oxygen saturation decreased [Recovered/Resolved]
  - Faecal incontinence [Recovered/Resolved]
  - Localised infection [Recovered/Resolved]
  - Prescribed overdose [Not Recovered/Not Resolved]
  - Memory impairment [Recovered/Resolved]
  - Sudden onset of sleep [Recovered/Resolved]

NARRATIVE: CASE EVENT DATE: 201403
